FAERS Safety Report 23964298 (Version 2)
Quarter: 2024Q3

REPORT INFORMATION
  Report Type: Report from Study
  Country: CO (occurrence: CO)
  Receive Date: 20240611
  Receipt Date: 20240721
  Transmission Date: 20241016
  Serious: Yes (Other)
  Sender: ABBVIE
  Company Number: CO-ABBVIE-5797544

PATIENT
  Age: 63 Year
  Sex: Male
  Weight: 60 kg

DRUGS (7)
  1. SKYRIZI [Suspect]
     Active Substance: RISANKIZUMAB-RZAA
     Indication: Psoriasis
     Dosage: FORM STRENGTH: 150 MILLIGRAM
     Route: 058
     Dates: start: 20211201, end: 20231130
  2. SKYRIZI [Suspect]
     Active Substance: RISANKIZUMAB-RZAA
     Dosage: FORM STRENGTH: 150 MILLIGRAM
     Route: 058
     Dates: start: 20240405, end: 20240405
  3. CALCIPOTRIENE [Concomitant]
     Active Substance: CALCIPOTRIENE
     Indication: General symptom
     Route: 061
     Dates: start: 2023
  4. BETAMETHASONE [Concomitant]
     Active Substance: BETAMETHASONE\BETAMETHASONE DIPROPIONATE
     Indication: General symptom
     Route: 061
     Dates: start: 2024
  5. FOLIC ACID [Concomitant]
     Active Substance: FOLIC ACID
     Indication: Psoriasis
     Route: 048
     Dates: start: 202306
  6. CLOBETASOL [Concomitant]
     Active Substance: CLOBETASOL
     Indication: General symptom
     Route: 061
     Dates: start: 2024
  7. NEOMYCIN [Concomitant]
     Active Substance: NEOMYCIN
     Indication: General symptom
     Route: 061
     Dates: start: 2024

REACTIONS (5)
  - Inguinal hernia [Recovering/Resolving]
  - Inflammation [Unknown]
  - Psoriasis [Not Recovered/Not Resolved]
  - Dry skin [Not Recovered/Not Resolved]
  - Skin discolouration [Not Recovered/Not Resolved]

NARRATIVE: CASE EVENT DATE: 20240301
